FAERS Safety Report 5278461-8 (Version None)
Quarter: 2007Q1

REPORT INFORMATION
  Report Type: 
  Country: None (occurrence: None)
  Receive Date: 20070328
  Receipt Date: 20070316
  Transmission Date: 20070707
  Serious: Yes (Other)
  Sender: FDA-Public Use
  Company Number: JP-PFIZER INC-2007018584

PATIENT
  Age: 53 Year
  Sex: Female
  Weight: 55.6 kg

DRUGS (2)
  1. MEDROL [Suspect]
     Indication: IMMUNOSUPPRESSION
     Dosage: DAILY DOSE:4MG
     Route: 048
  2. TACROLIMUS [Concomitant]
     Route: 048

REACTIONS (1)
  - PNEUMONITIS CRYPTOCOCCAL [None]
